APPROVED DRUG PRODUCT: TETRACYCLINE HYDROCHLORIDE
Active Ingredient: TETRACYCLINE HYDROCHLORIDE
Strength: 250MG
Dosage Form/Route: CAPSULE;ORAL
Application: A212635 | Product #001 | TE Code: AB
Applicant: NOVITIUM PHARMA LLC
Approved: Mar 3, 2020 | RLD: No | RS: No | Type: RX